FAERS Safety Report 9603852 (Version 4)
Quarter: 2014Q2

REPORT INFORMATION
  Report Type: Spontaneous
  Country: US (occurrence: US)
  Receive Date: 20131008
  Receipt Date: 20140408
  Transmission Date: 20141212
  Serious: No
  Sender: FDA-Public Use
  Company Number: US-B.I. PHARMACEUTICALS,INC./RIDGEFIELD-2013-BI-30698BP

PATIENT
  Age: 60 Year
  Sex: Female

DRUGS (9)
  1. COMBIVENT [Suspect]
     Indication: CHRONIC OBSTRUCTIVE PULMONARY DISEASE
     Dosage: STRENGTH: 20 MCG / 100 MCG; DAILY DOSE: 160 MCG / 800 MCG
     Route: 055
     Dates: start: 201309
  2. COMBIVENT [Suspect]
     Dosage: STRENGTH: 20 MCG / 100 MCG; DAILY DOSE: 80 MCG / 400 MCG
     Route: 048
     Dates: start: 201308
  3. PERCOCET [Concomitant]
     Indication: BACK PAIN
     Route: 048
  4. SOMA [Concomitant]
     Indication: MUSCLE SPASMS
     Dosage: 3 ANZ
     Route: 048
  5. CELEXA [Concomitant]
     Indication: BIPOLAR DISORDER
     Dosage: 2 ANZ
     Route: 048
  6. NEUROTIN [Concomitant]
     Indication: BURNING SENSATION
     Route: 048
  7. VALIUM [Concomitant]
     Dosage: 20 MG
     Route: 048
  8. METHADONE [Concomitant]
     Indication: BACK PAIN
     Dosage: 5 MG
     Route: 048
  9. COMBIVENT INHALATION AEROSOL [Concomitant]
     Indication: CHRONIC OBSTRUCTIVE PULMONARY DISEASE
     Dosage: DOSE PER APPLICATION: 18 MCG/103; DAILY DOSE: 144MCG/824 MCG
     Route: 055
     Dates: start: 201302, end: 201308

REACTIONS (8)
  - Bronchitis [Not Recovered/Not Resolved]
  - Dyspnoea [Not Recovered/Not Resolved]
  - Wheezing [Not Recovered/Not Resolved]
  - Cough [Not Recovered/Not Resolved]
  - Overdose [Not Recovered/Not Resolved]
  - Product quality issue [Recovered/Resolved]
  - Product quality issue [Not Recovered/Not Resolved]
  - Product quality issue [Not Recovered/Not Resolved]
